FAERS Safety Report 17250967 (Version 1)
Quarter: 2020Q1

REPORT INFORMATION
  Report Type: Spontaneous
  Country: CA (occurrence: CA)
  Receive Date: 20200109
  Receipt Date: 20200109
  Transmission Date: 20200409
  Serious: Yes (Hospitalization)
  Sender: FDA-Public Use
  Company Number: CA-ACCORD-169012

PATIENT
  Age: 67 Year
  Sex: Male
  Weight: 74.84 kg

DRUGS (5)
  1. OLMESARTAN/OLMESARTAN MEDOXOMIL [Suspect]
     Active Substance: OLMESARTAN MEDOXOMIL
     Indication: HYPERTENSION
     Dosage: 1 EVERY 1 DAYS
     Route: 048
  2. ATORVASTATIN [Concomitant]
     Active Substance: ATORVASTATIN
  3. LOPERAMIDE [Concomitant]
     Active Substance: LOPERAMIDE
  4. METOPROLOL. [Concomitant]
     Active Substance: METOPROLOL
  5. ASA [Concomitant]
     Active Substance: ASPIRIN

REACTIONS (6)
  - Blood immunoglobulin E increased [Recovering/Resolving]
  - Weight decreased [Recovering/Resolving]
  - Diarrhoea [Recovering/Resolving]
  - Malnutrition [Recovering/Resolving]
  - Biopsy intestine abnormal [Recovering/Resolving]
  - Vomiting [Recovering/Resolving]
